FAERS Safety Report 9451435 (Version 2)
Quarter: 2013Q3

REPORT INFORMATION
  Report Type: Spontaneous
  Country: BR (occurrence: BR)
  Receive Date: 20130809
  Receipt Date: 20130816
  Transmission Date: 20140515
  Serious: Yes (Death, Life-Threatening, Hospitalization, Disabling)
  Sender: FDA-Public Use
  Company Number: BR-B.I. PHARMACEUTICALS,INC./RIDGEFIELD-2013-BR-00900BR

PATIENT
  Age: 72 Year
  Sex: Female
  Weight: 82 kg

DRUGS (4)
  1. SPIRIVA RESPIMAT [Suspect]
     Indication: RESPIRATORY FAILURE
     Dosage: 2.5 MCG
     Route: 055
     Dates: end: 20130721
  2. SIFROL ER [Suspect]
     Indication: PARKINSON^S DISEASE
     Dosage: 0.4 MG
     Route: 048
     Dates: end: 20130721
  3. ONBRIZE [Concomitant]
     Indication: LUNG DISORDER
     Dates: end: 20130721
  4. ADALAT [Concomitant]
     Indication: HYPERTENSION
     Dosage: 02 TABLETS PER DAY
     Dates: end: 20130721

REACTIONS (3)
  - Respiratory tract infection [Fatal]
  - Lung infection [Fatal]
  - Pneumonia [Recovered/Resolved]
